FAERS Safety Report 14685745 (Version 15)
Quarter: 2025Q3

REPORT INFORMATION
  Report Type: Report from Study
  Country: EU (occurrence: EU)
  Receive Date: 20180327
  Receipt Date: 20250821
  Transmission Date: 20251021
  Serious: Yes (Hospitalization, Other)
  Sender: DAIICHI
  Company Number: EU-ABBVIE-17K-062-1974136-00

PATIENT
  Age: 82 Year
  Sex: Female
  Weight: 56 kg

DRUGS (399)
  1. EDOXABAN [Suspect]
     Active Substance: EDOXABAN
     Indication: Atrial fibrillation
     Dosage: 30 MG, QD,
     Route: 065
     Dates: start: 20160930
  2. EDOXABAN [Suspect]
     Active Substance: EDOXABAN
     Dosage: 30 MG, QD
     Route: 065
  3. EDOXABAN [Suspect]
     Active Substance: EDOXABAN
     Dosage: 30 MG, QD
     Route: 065
  4. EDOXABAN [Suspect]
     Active Substance: EDOXABAN
     Dosage: 30 MG, QD
     Route: 065
     Dates: start: 20160930
  5. DICLOFENAC [Suspect]
     Active Substance: DICLOFENAC
     Indication: Product used for unknown indication
     Dosage: 2 DOSAGE FORM, QD
     Route: 065
     Dates: start: 201610
  6. DICLOFENAC [Suspect]
     Active Substance: DICLOFENAC
     Route: 065
  7. DICLOFENAC [Suspect]
     Active Substance: DICLOFENAC
     Route: 065
  8. VALSARTAN [Suspect]
     Active Substance: VALSARTAN
     Indication: Product used for unknown indication
     Route: 065
  9. VALSARTAN [Suspect]
     Active Substance: VALSARTAN
     Route: 065
  10. VALSARTAN [Suspect]
     Active Substance: VALSARTAN
     Route: 065
  11. VALSARTAN [Suspect]
     Active Substance: VALSARTAN
     Route: 065
  12. DICLOFENAC SODIUM [Suspect]
     Active Substance: DICLOFENAC SODIUM
     Indication: Product used for unknown indication
     Dosage: 2 DOSAGE FORM, QD
     Route: 065
     Dates: start: 201610, end: 201610
  13. DICLOFENAC SODIUM [Suspect]
     Active Substance: DICLOFENAC SODIUM
     Dosage: 2 DOSAGE FORM, QD(2 DOSAGE FORM, QDSTRAT AND STOP DATE 2026-10  )
     Route: 065
     Dates: start: 201610, end: 201610
  14. DICLOFENAC SODIUM [Suspect]
     Active Substance: DICLOFENAC SODIUM
     Dosage: 2 DOSAGE FORM, QD(2 DOSAGE FORM, QDSTRAT AND STOP DATE 2026-10)
     Route: 065
     Dates: start: 201610, end: 201610
  15. DICLOFENAC SODIUM [Suspect]
     Active Substance: DICLOFENAC SODIUM
     Dosage: 2 DOSAGE FORM, QD(2 DOSAGE FORM, QDSTRAT AND STOP DATE 2026-10  )
     Route: 065
  16. DICLOFENAC SODIUM [Suspect]
     Active Substance: DICLOFENAC SODIUM
     Dosage: 2 DOSAGE FORM, QD(2 DOSAGE FORM, QDSTRAT AND STOP DATE 2026-10)
     Route: 065
  17. DICLOFENAC [Suspect]
     Active Substance: DICLOFENAC
     Indication: Product used for unknown indication
     Dosage: 2 DF, QD (2 (UNITS: UNKNOWN), DAILY )
     Route: 065
     Dates: start: 201610, end: 201610
  18. DICLOFENAC [Suspect]
     Active Substance: DICLOFENAC
     Dosage: UNK UNK, QD
     Route: 065
     Dates: start: 201610, end: 201610
  19. DICLOFENAC [Suspect]
     Active Substance: DICLOFENAC
     Dosage: 2 DOSAGE FORM, QD
     Route: 065
     Dates: start: 201610, end: 201610
  20. DICLOFENAC [Suspect]
     Active Substance: DICLOFENAC
     Dosage: UNK UNK, QD
     Route: 065
     Dates: start: 201610, end: 201610
  21. DICLOFENAC [Suspect]
     Active Substance: DICLOFENAC
     Dosage: UNK UNK, QD
     Route: 065
     Dates: start: 201610, end: 201610
  22. BISOPROLOL FUMARATE [Suspect]
     Active Substance: BISOPROLOL FUMARATE
     Indication: Product used for unknown indication
     Dosage: 5 MG, QD
     Route: 065
     Dates: start: 2016
  23. BISOPROLOL FUMARATE [Suspect]
     Active Substance: BISOPROLOL FUMARATE
     Dosage: 0.5 MG, QD
     Route: 065
     Dates: start: 2016
  24. BISOPROLOL FUMARATE [Suspect]
     Active Substance: BISOPROLOL FUMARATE
     Dosage: 5 MG, QD
     Route: 065
  25. BISOPROLOL FUMARATE [Suspect]
     Active Substance: BISOPROLOL FUMARATE
     Dosage: 5 MG, QD
     Route: 065
  26. BISOPROLOL FUMARATE [Suspect]
     Active Substance: BISOPROLOL FUMARATE
     Dosage: 0.5 MG, QD
     Route: 065
     Dates: start: 2016
  27. FENTANYL [Suspect]
     Active Substance: FENTANYL
     Indication: Product used for unknown indication
     Route: 062
  28. FENTANYL [Suspect]
     Active Substance: FENTANYL
     Route: 062
  29. AMIODARONE HYDROCHLORIDE [Suspect]
     Active Substance: AMIODARONE HYDROCHLORIDE
     Indication: Product used for unknown indication
     Route: 065
  30. AMIODARONE HYDROCHLORIDE [Suspect]
     Active Substance: AMIODARONE HYDROCHLORIDE
     Route: 065
  31. SIMVASTATIN [Suspect]
     Active Substance: SIMVASTATIN
     Indication: Product used for unknown indication
     Route: 065
  32. SIMVASTATIN [Suspect]
     Active Substance: SIMVASTATIN
     Route: 065
  33. CLOPIDOGREL [Suspect]
     Active Substance: CLOPIDOGREL BISULFATE
     Indication: Product used for unknown indication
     Route: 065
  34. CLOPIDOGREL [Suspect]
     Active Substance: CLOPIDOGREL BISULFATE
     Route: 048
     Dates: start: 20170124
  35. CLOPIDOGREL [Suspect]
     Active Substance: CLOPIDOGREL BISULFATE
     Route: 065
  36. CLOPIDOGREL [Suspect]
     Active Substance: CLOPIDOGREL BISULFATE
     Route: 048
     Dates: start: 20170124
  37. CLOPIDOGREL [Suspect]
     Active Substance: CLOPIDOGREL BISULFATE
     Route: 065
  38. CLOPIDOGREL [Suspect]
     Active Substance: CLOPIDOGREL BISULFATE
     Route: 065
  39. CLOPIDOGREL [Suspect]
     Active Substance: CLOPIDOGREL BISULFATE
     Route: 065
     Dates: start: 20170124
  40. CLOPIDOGREL [Suspect]
     Active Substance: CLOPIDOGREL BISULFATE
     Route: 048
     Dates: start: 20170124
  41. CLOPIDOGREL [Suspect]
     Active Substance: CLOPIDOGREL BISULFATE
     Route: 065
  42. CLOPIDOGREL [Suspect]
     Active Substance: CLOPIDOGREL BISULFATE
     Route: 065
  43. CLOPIDOGREL [Suspect]
     Active Substance: CLOPIDOGREL BISULFATE
     Route: 048
  44. CLOPIDOGREL [Suspect]
     Active Substance: CLOPIDOGREL BISULFATE
     Route: 065
     Dates: start: 20170124, end: 20170124
  45. CLOPIDOGREL [Suspect]
     Active Substance: CLOPIDOGREL BISULFATE
     Route: 048
     Dates: end: 20170124
  46. CLOPIDOGREL [Suspect]
     Active Substance: CLOPIDOGREL BISULFATE
     Route: 048
     Dates: end: 20170124
  47. CLOPIDOGREL [Suspect]
     Active Substance: CLOPIDOGREL BISULFATE
     Route: 065
  48. CLOPIDOGREL [Suspect]
     Active Substance: CLOPIDOGREL BISULFATE
     Route: 048
  49. CLOPIDOGREL [Suspect]
     Active Substance: CLOPIDOGREL BISULFATE
     Route: 048
     Dates: start: 20170124
  50. CLOPIDOGREL [Suspect]
     Active Substance: CLOPIDOGREL BISULFATE
     Route: 065
  51. CLOPIDOGREL [Suspect]
     Active Substance: CLOPIDOGREL BISULFATE
     Route: 048
  52. CLOPIDOGREL [Suspect]
     Active Substance: CLOPIDOGREL BISULFATE
     Route: 048
     Dates: start: 20170124
  53. CLOPIDOGREL [Suspect]
     Active Substance: CLOPIDOGREL BISULFATE
     Route: 048
     Dates: start: 20170124
  54. CLOPIDOGREL [Suspect]
     Active Substance: CLOPIDOGREL BISULFATE
     Route: 048
  55. CLOPIDOGREL [Suspect]
     Active Substance: CLOPIDOGREL BISULFATE
     Route: 048
  56. CLOPIDOGREL [Suspect]
     Active Substance: CLOPIDOGREL BISULFATE
     Route: 048
     Dates: start: 20170124
  57. CLOPIDOGREL [Suspect]
     Active Substance: CLOPIDOGREL BISULFATE
     Route: 048
     Dates: start: 20170124
  58. CLOPIDOGREL [Suspect]
     Active Substance: CLOPIDOGREL BISULFATE
     Route: 048
  59. CLOPIDOGREL [Suspect]
     Active Substance: CLOPIDOGREL BISULFATE
     Route: 048
     Dates: start: 20170124
  60. CLOPIDOGREL [Suspect]
     Active Substance: CLOPIDOGREL BISULFATE
     Route: 048
     Dates: start: 20170124
  61. CLOPIDOGREL [Suspect]
     Active Substance: CLOPIDOGREL BISULFATE
     Route: 048
  62. FENTANYL [Suspect]
     Active Substance: FENTANYL
     Indication: Product used for unknown indication
     Dosage: 75 MICROGRAM/HOUR AND PLASTER CHANGE EVERY 3 DAYS
     Route: 062
  63. FENTANYL [Suspect]
     Active Substance: FENTANYL
     Dosage: 75 MICROGRAM/HOUR AND PLASTER CHANGE EVERY 3 DAYS
     Route: 062
  64. HYDROCHLOROTHIAZIDE\LOSARTAN [Suspect]
     Active Substance: HYDROCHLOROTHIAZIDE\LOSARTAN
     Indication: Product used for unknown indication
     Dosage: 1 DOSAGE FORM, QD (100/25 MGSTART DATE: 2016 ROUTE: UNKNOWN)
     Route: 065
     Dates: start: 2016
  65. LOSARTAN POTASSIUM [Suspect]
     Active Substance: LOSARTAN POTASSIUM
     Indication: Product used for unknown indication
     Route: 065
     Dates: start: 2016
  66. LOSARTAN POTASSIUM [Suspect]
     Active Substance: LOSARTAN POTASSIUM
     Route: 065
     Dates: start: 2016
  67. PANTOPRAZOLE SODIUM [Suspect]
     Active Substance: PANTOPRAZOLE SODIUM
     Indication: Product used for unknown indication
     Dosage: 200 MG
     Route: 065
  68. PANTOPRAZOLE SODIUM [Suspect]
     Active Substance: PANTOPRAZOLE SODIUM
     Dosage: 20 MG, QD
     Route: 065
  69. PREDNISOLONE ACETATE [Suspect]
     Active Substance: PREDNISOLONE ACETATE
     Indication: Product used for unknown indication
     Route: 065
  70. ASPIRIN [Suspect]
     Active Substance: ASPIRIN
     Indication: Product used for unknown indication
     Route: 065
  71. ASPIRIN [Suspect]
     Active Substance: ASPIRIN
     Route: 065
  72. TORSEMIDE [Suspect]
     Active Substance: TORSEMIDE
     Indication: Product used for unknown indication
     Dosage: 5 MG, QD
     Route: 065
     Dates: start: 20170124, end: 20170124
  73. TORSEMIDE [Suspect]
     Active Substance: TORSEMIDE
     Dosage: 1 DOSAGE FORM, QD
     Route: 065
  74. TORSEMIDE [Suspect]
     Active Substance: TORSEMIDE
     Dosage: 5 MG, QD
     Route: 065
     Dates: start: 20170124
  75. TORSEMIDE [Suspect]
     Active Substance: TORSEMIDE
     Dosage: 1 DOSAGE FORM, QD
     Route: 065
  76. TORSEMIDE [Suspect]
     Active Substance: TORSEMIDE
     Dosage: 1 DOSAGE FORM, QD
     Route: 065
  77. CERISA [Suspect]
     Active Substance: SULFACETAMIDE SODIUM\SULFUR
     Indication: Product used for unknown indication
     Route: 065
     Dates: start: 20170124
  78. CERISA [Suspect]
     Active Substance: SULFACETAMIDE SODIUM\SULFUR
     Dosage: 15 MG, QD
     Route: 065
     Dates: start: 20170124
  79. CHOLECALCIFEROL [Suspect]
     Active Substance: CHOLECALCIFEROL
     Indication: Product used for unknown indication
     Dosage: 20000 IU, QW
     Route: 065
  80. CHOLECALCIFEROL [Suspect]
     Active Substance: CHOLECALCIFEROL
     Dosage: 20000 IU, ONCE EVERY 1 WK (20000 IU, QW (DAILY DOSE: 20000 IU INTERNATIONAL UNIT(S) EVERY WEEKS)
     Route: 065
  81. CHOLECALCIFEROL [Suspect]
     Active Substance: CHOLECALCIFEROL
     Dosage: 2000 IU, QW(20000 IU, QW (DAILY DOSE: 20000 IU INTERNATIONAL UNIT(S) EVERY WEEKS)
     Route: 065
  82. HUMIRA [Suspect]
     Active Substance: ADALIMUMAB
     Indication: Rheumatoid arthritis
     Dosage: 2 DOSAGE FORM, ONCE EVERY 2 WK
     Route: 058
     Dates: start: 20120111, end: 20160927
  83. HUMIRA [Suspect]
     Active Substance: ADALIMUMAB
     Dosage: 1 DOSAGE FORM, ONCE EVERY 1 WK
     Route: 058
     Dates: start: 20160927
  84. HUMIRA [Suspect]
     Active Substance: ADALIMUMAB
     Dosage: 1 DOSAGE FORM, BIW
     Route: 058
     Dates: start: 20161115
  85. HUMIRA [Suspect]
     Active Substance: ADALIMUMAB
     Dosage: UNK UNK, QW
     Route: 058
     Dates: start: 20120411, end: 20160927
  86. HUMIRA [Suspect]
     Active Substance: ADALIMUMAB
     Dosage: UNK, QW
     Route: 058
     Dates: start: 20161115
  87. HUMIRA [Suspect]
     Active Substance: ADALIMUMAB
     Dosage: 40 MG, QW
     Route: 058
     Dates: start: 20161115
  88. HUMIRA [Suspect]
     Active Substance: ADALIMUMAB
     Dosage: 40 MG, Q2W
     Route: 058
     Dates: start: 20120411, end: 20160927
  89. HUMIRA [Suspect]
     Active Substance: ADALIMUMAB
     Dosage: 40 MG, QW
     Route: 058
     Dates: start: 20120111, end: 20160927
  90. HUMIRA [Suspect]
     Active Substance: ADALIMUMAB
     Dosage: 1 DF, 1 DOSAGE FORM, BIW (2 DF, QW)
     Route: 058
     Dates: start: 20161115
  91. HUMIRA [Suspect]
     Active Substance: ADALIMUMAB
     Dosage: 1 DOSAGE FORM, Q2W
     Route: 058
     Dates: start: 20160927
  92. HUMIRA [Suspect]
     Active Substance: ADALIMUMAB
     Dosage: 4 DOSAGE FORM, QW (2 DOSAGE FORM, BIW)
     Route: 058
     Dates: start: 20120111, end: 20160927
  93. HUMIRA [Suspect]
     Active Substance: ADALIMUMAB
     Route: 058
     Dates: end: 20160927
  94. HUMIRA [Suspect]
     Active Substance: ADALIMUMAB
     Route: 058
     Dates: start: 20120111, end: 20160927
  95. HUMIRA [Suspect]
     Active Substance: ADALIMUMAB
     Dosage: 40 MG, QW
     Route: 058
     Dates: start: 20160111
  96. HUMIRA [Suspect]
     Active Substance: ADALIMUMAB
     Route: 058
     Dates: start: 20161115
  97. HUMIRA [Suspect]
     Active Substance: ADALIMUMAB
     Route: 058
     Dates: start: 20120111, end: 20160927
  98. HUMIRA [Suspect]
     Active Substance: ADALIMUMAB
     Route: 058
     Dates: start: 20161115
  99. HUMIRA [Suspect]
     Active Substance: ADALIMUMAB
     Route: 058
     Dates: start: 20120111, end: 20160927
  100. HUMIRA [Suspect]
     Active Substance: ADALIMUMAB
     Route: 058
     Dates: start: 20120111, end: 20160927
  101. HUMIRA [Suspect]
     Active Substance: ADALIMUMAB
     Route: 058
     Dates: start: 20120111, end: 20160927
  102. HUMIRA [Suspect]
     Active Substance: ADALIMUMAB
     Route: 058
     Dates: start: 20120411, end: 20160927
  103. MOVICOL [Suspect]
     Active Substance: POLYETHYLENE GLYCOL 3350\POTASSIUM CHLORIDE\SODIUM BICARBONATE\SODIUM CHLORIDE
     Indication: Product used for unknown indication
     Route: 065
     Dates: start: 20170124
  104. MOVICOL [Suspect]
     Active Substance: POLYETHYLENE GLYCOL 3350\POTASSIUM CHLORIDE\SODIUM BICARBONATE\SODIUM CHLORIDE
     Route: 065
  105. MOVICOL [Suspect]
     Active Substance: POLYETHYLENE GLYCOL 3350\POTASSIUM CHLORIDE\SODIUM BICARBONATE\SODIUM CHLORIDE
     Route: 065
  106. MOVICOL [Suspect]
     Active Substance: POLYETHYLENE GLYCOL 3350\POTASSIUM CHLORIDE\SODIUM BICARBONATE\SODIUM CHLORIDE
     Route: 065
  107. PHLOROGLUCINOL [Suspect]
     Active Substance: PHLOROGLUCINOL
     Indication: Product used for unknown indication
     Dosage: 15 MG, QD
     Route: 065
     Dates: start: 20170124, end: 20170124
  108. PHLOROGLUCINOL [Suspect]
     Active Substance: PHLOROGLUCINOL
     Dosage: 45 MG, QD (45 MG, QD DAILY, FIRST ADMIN DATE: 24 JAN 2017
     Route: 048
     Dates: start: 20170124
  109. PHLOROGLUCINOL [Suspect]
     Active Substance: PHLOROGLUCINOL
     Route: 065
  110. PHLOROGLUCINOL [Suspect]
     Active Substance: PHLOROGLUCINOL
     Dosage: 15 MG, QD (15 MG, QD, FIRST ADMIN DATE: 24 JAN 2017
     Route: 065
     Dates: start: 20170124
  111. PHLOROGLUCINOL [Suspect]
     Active Substance: PHLOROGLUCINOL
     Route: 065
  112. FUROSEMIDE\SPIRONOLACTONE [Suspect]
     Active Substance: FUROSEMIDE\SPIRONOLACTONE
     Indication: Product used for unknown indication
     Dosage: 1 DOSAGE FORM, QD (1X/DAY, 50MG/20MG)
     Route: 065
     Dates: start: 201610, end: 201610
  113. FUROSEMIDE\SPIRONOLACTONE [Suspect]
     Active Substance: FUROSEMIDE\SPIRONOLACTONE
     Dosage: 1 DOSAGE FORM, QD
     Route: 065
  114. FUROSEMIDE\SPIRONOLACTONE [Suspect]
     Active Substance: FUROSEMIDE\SPIRONOLACTONE
     Route: 065
  115. FUROSEMIDE\SPIRONOLACTONE [Suspect]
     Active Substance: FUROSEMIDE\SPIRONOLACTONE
     Dosage: QD (50MG/20MG))
     Route: 065
  116. FUROSEMIDE\SPIRONOLACTONE [Suspect]
     Active Substance: FUROSEMIDE\SPIRONOLACTONE
     Route: 065
  117. FUROSEMIDE\SPIRONOLACTONE [Suspect]
     Active Substance: FUROSEMIDE\SPIRONOLACTONE
     Route: 065
  118. FUROSEMIDE\SPIRONOLACTONE [Suspect]
     Active Substance: FUROSEMIDE\SPIRONOLACTONE
     Route: 065
  119. TORSEMIDE [Suspect]
     Active Substance: TORSEMIDE
     Indication: Product used for unknown indication
     Dosage: 15 MG, QD
     Route: 065
     Dates: start: 20170124
  120. TORSEMIDE [Suspect]
     Active Substance: TORSEMIDE
     Dosage: 5 MG, QD
     Route: 065
  121. TORSEMIDE [Suspect]
     Active Substance: TORSEMIDE
     Dosage: 15 MG, QD
     Route: 065
     Dates: start: 20170124
  122. TORSEMIDE [Suspect]
     Active Substance: TORSEMIDE
     Route: 065
  123. TORSEMIDE [Suspect]
     Active Substance: TORSEMIDE
     Dosage: 5 MG, QD
     Route: 065
     Dates: start: 20170124
  124. TORSEMIDE [Suspect]
     Active Substance: TORSEMIDE
     Dosage: 5 MG, QD
     Route: 065
  125. TORSEMIDE [Suspect]
     Active Substance: TORSEMIDE
     Dosage: 45 MG, QD
     Route: 065
     Dates: start: 20170124
  126. XIPAMIDE [Suspect]
     Active Substance: XIPAMIDE
     Indication: Product used for unknown indication
     Route: 065
     Dates: start: 20170124, end: 20170124
  127. METOPROLOL SUCCINATE [Suspect]
     Active Substance: METOPROLOL SUCCINATE
     Indication: Product used for unknown indication
     Route: 065
     Dates: start: 20170124, end: 20170124
  128. METOPROLOL SUCCINATE [Suspect]
     Active Substance: METOPROLOL SUCCINATE
     Route: 065
  129. METOPROLOL SUCCINATE [Suspect]
     Active Substance: METOPROLOL SUCCINATE
     Dosage: 95 MG, QD
     Route: 065
  130. METOPROLOL SUCCINATE [Suspect]
     Active Substance: METOPROLOL SUCCINATE
     Route: 065
     Dates: start: 20170124
  131. METOPROLOL SUCCINATE [Suspect]
     Active Substance: METOPROLOL SUCCINATE
     Route: 065
  132. METOPROLOL SUCCINATE [Suspect]
     Active Substance: METOPROLOL SUCCINATE
     Route: 065
     Dates: start: 20170124
  133. TROSPIUM CHLORIDE [Suspect]
     Active Substance: TROSPIUM CHLORIDE
     Indication: Product used for unknown indication
     Dosage: 15 MG, QD, FIRST ADMIN DATE: 24 JAN 2017
     Route: 065
     Dates: start: 20170124
  134. TROSPIUM CHLORIDE [Suspect]
     Active Substance: TROSPIUM CHLORIDE
     Route: 065
     Dates: start: 20170124
  135. CLOPIDOGREL BISULFATE [Suspect]
     Active Substance: CLOPIDOGREL BISULFATE
     Indication: Product used for unknown indication
     Route: 048
  136. CLOPIDOGREL BISULFATE [Suspect]
     Active Substance: CLOPIDOGREL BISULFATE
     Route: 048
  137. CLOPIDOGREL BISULFATE [Suspect]
     Active Substance: CLOPIDOGREL BISULFATE
     Route: 048
  138. LACTULOSE [Suspect]
     Active Substance: LACTULOSE
     Indication: Product used for unknown indication
     Route: 065
     Dates: start: 20170124
  139. LACTULOSE [Suspect]
     Active Substance: LACTULOSE
     Route: 065
  140. LACTULOSE [Suspect]
     Active Substance: LACTULOSE
     Route: 065
  141. LACTULOSE [Suspect]
     Active Substance: LACTULOSE
     Route: 065
  142. HYDROCHLOROTHIAZIDE\LOSARTAN POTASSIUM [Suspect]
     Active Substance: HYDROCHLOROTHIAZIDE\LOSARTAN POTASSIUM
     Indication: Product used for unknown indication
     Dosage: 1 DOSAGE FORM, QD
     Route: 065
  143. HYDROCHLOROTHIAZIDE\LOSARTAN POTASSIUM [Suspect]
     Active Substance: HYDROCHLOROTHIAZIDE\LOSARTAN POTASSIUM
     Dosage: 1 DOSAGE FORM, QD
     Route: 065
  144. HYDROCHLOROTHIAZIDE\LOSARTAN POTASSIUM [Suspect]
     Active Substance: HYDROCHLOROTHIAZIDE\LOSARTAN POTASSIUM
     Dosage: UNK, UNK, QD (100/25 MG)
     Route: 065
  145. CANDESARTAN CILEXETIL\HYDROCHLOROTHIAZIDE [Suspect]
     Active Substance: CANDESARTAN CILEXETIL\HYDROCHLOROTHIAZIDE
     Indication: Product used for unknown indication
     Dosage: 1 DOSAGE FORM, QD
     Route: 065
  146. NADROPARIN CALCIUM [Concomitant]
     Active Substance: NADROPARIN CALCIUM
     Indication: Product used for unknown indication
     Route: 065
  147. NADROPARIN CALCIUM [Concomitant]
     Active Substance: NADROPARIN CALCIUM
     Dosage: 5700 IU, QD
     Route: 065
  148. NADROPARIN CALCIUM [Concomitant]
     Active Substance: NADROPARIN CALCIUM
     Route: 065
  149. NADROPARIN CALCIUM [Concomitant]
     Active Substance: NADROPARIN CALCIUM
     Route: 065
  150. NADROPARIN CALCIUM [Concomitant]
     Active Substance: NADROPARIN CALCIUM
     Route: 065
  151. NADROPARIN CALCIUM [Concomitant]
     Active Substance: NADROPARIN CALCIUM
     Route: 065
  152. NADROPARIN CALCIUM [Concomitant]
     Active Substance: NADROPARIN CALCIUM
     Dosage: 5700 IU, QD
     Route: 058
  153. NADROPARIN CALCIUM [Concomitant]
     Active Substance: NADROPARIN CALCIUM
     Route: 065
  154. NADROPARIN CALCIUM [Concomitant]
     Active Substance: NADROPARIN CALCIUM
     Route: 065
  155. NADROPARIN CALCIUM [Concomitant]
     Active Substance: NADROPARIN CALCIUM
     Route: 065
  156. NADROPARIN CALCIUM [Concomitant]
     Active Substance: NADROPARIN CALCIUM
     Dosage: 5700 IU, QD
     Route: 065
  157. NADROPARIN CALCIUM [Concomitant]
     Active Substance: NADROPARIN CALCIUM
     Route: 065
  158. NADROPARIN CALCIUM [Concomitant]
     Active Substance: NADROPARIN CALCIUM
     Route: 065
  159. NADROPARIN CALCIUM [Concomitant]
     Active Substance: NADROPARIN CALCIUM
     Route: 065
  160. NADROPARIN CALCIUM [Concomitant]
     Active Substance: NADROPARIN CALCIUM
     Route: 065
  161. NADROPARIN CALCIUM [Concomitant]
     Active Substance: NADROPARIN CALCIUM
     Route: 065
  162. NADROPARIN CALCIUM [Concomitant]
     Active Substance: NADROPARIN CALCIUM
     Route: 065
  163. NADROPARIN CALCIUM [Concomitant]
     Active Substance: NADROPARIN CALCIUM
     Dosage: 5700 IU, QD
     Route: 058
  164. NADROPARIN CALCIUM [Concomitant]
     Active Substance: NADROPARIN CALCIUM
     Dosage: 5700 IU, QD
     Route: 058
  165. NADROPARIN CALCIUM [Concomitant]
     Active Substance: NADROPARIN CALCIUM
     Dosage: 5700 IU, QD
     Route: 058
  166. NADROPARIN CALCIUM [Concomitant]
     Active Substance: NADROPARIN CALCIUM
     Route: 065
  167. NADROPARIN CALCIUM [Concomitant]
     Active Substance: NADROPARIN CALCIUM
     Route: 065
  168. NADROPARIN CALCIUM [Concomitant]
     Active Substance: NADROPARIN CALCIUM
     Route: 065
  169. NADROPARIN CALCIUM [Concomitant]
     Active Substance: NADROPARIN CALCIUM
     Route: 065
  170. NADROPARIN CALCIUM [Concomitant]
     Active Substance: NADROPARIN CALCIUM
     Route: 065
  171. NADROPARIN CALCIUM [Concomitant]
     Active Substance: NADROPARIN CALCIUM
     Route: 065
  172. NADROPARIN CALCIUM [Concomitant]
     Active Substance: NADROPARIN CALCIUM
     Dosage: 5700 IU, QD
     Route: 058
  173. NADROPARIN CALCIUM [Concomitant]
     Active Substance: NADROPARIN CALCIUM
     Route: 065
  174. NADROPARIN CALCIUM [Concomitant]
     Active Substance: NADROPARIN CALCIUM
     Route: 065
  175. NADROPARIN CALCIUM [Concomitant]
     Active Substance: NADROPARIN CALCIUM
     Route: 065
  176. NADROPARIN CALCIUM [Concomitant]
     Active Substance: NADROPARIN CALCIUM
     Route: 065
  177. NADROPARIN CALCIUM [Concomitant]
     Active Substance: NADROPARIN CALCIUM
     Route: 065
  178. MAGALDRATE [Concomitant]
     Active Substance: MAGALDRATE
     Indication: Product used for unknown indication
     Dosage: 1600 MG, QD
     Route: 048
  179. MAGALDRATE [Concomitant]
     Active Substance: MAGALDRATE
     Route: 065
  180. MAGALDRATE [Concomitant]
     Active Substance: MAGALDRATE
     Dosage: 4800 MG, QD
     Route: 048
  181. MAGALDRATE [Concomitant]
     Active Substance: MAGALDRATE
     Route: 065
  182. FOLIC ACID [Concomitant]
     Active Substance: FOLIC ACID
     Indication: Product used for unknown indication
     Route: 065
  183. FOLIC ACID [Concomitant]
     Active Substance: FOLIC ACID
     Route: 065
     Dates: start: 20170124
  184. FOLIC ACID [Concomitant]
     Active Substance: FOLIC ACID
     Route: 065
     Dates: start: 20170124
  185. FOLIC ACID [Concomitant]
     Active Substance: FOLIC ACID
     Route: 065
     Dates: start: 20170124
  186. FOLIC ACID [Concomitant]
     Active Substance: FOLIC ACID
     Route: 065
     Dates: start: 20170124
  187. SODIUM CHLORIDE [Concomitant]
     Active Substance: SODIUM CHLORIDE
     Indication: Product used for unknown indication
     Route: 065
     Dates: start: 201611
  188. SODIUM CHLORIDE [Concomitant]
     Active Substance: SODIUM CHLORIDE
     Dosage: UNK, QD
     Route: 065
  189. SODIUM CHLORIDE [Concomitant]
     Active Substance: SODIUM CHLORIDE
     Dosage: 3 DOSAGE FORM, QD
     Route: 065
  190. SODIUM CHLORIDE [Concomitant]
     Active Substance: SODIUM CHLORIDE
     Route: 065
  191. SODIUM CHLORIDE [Concomitant]
     Active Substance: SODIUM CHLORIDE
     Route: 065
  192. SODIUM CHLORIDE [Concomitant]
     Active Substance: SODIUM CHLORIDE
     Route: 065
  193. SODIUM CHLORIDE [Concomitant]
     Active Substance: SODIUM CHLORIDE
     Route: 065
  194. SODIUM CHLORIDE [Concomitant]
     Active Substance: SODIUM CHLORIDE
     Route: 065
  195. SODIUM CHLORIDE [Concomitant]
     Active Substance: SODIUM CHLORIDE
     Route: 065
  196. SODIUM CHLORIDE [Concomitant]
     Active Substance: SODIUM CHLORIDE
     Route: 065
  197. SODIUM CHLORIDE [Concomitant]
     Active Substance: SODIUM CHLORIDE
     Route: 065
  198. SODIUM CHLORIDE [Concomitant]
     Active Substance: SODIUM CHLORIDE
     Route: 065
  199. SODIUM CHLORIDE [Concomitant]
     Active Substance: SODIUM CHLORIDE
     Dosage: 3 DOSAGE FORM, QD
     Route: 065
  200. SODIUM CHLORIDE [Concomitant]
     Active Substance: SODIUM CHLORIDE
     Route: 065
  201. SODIUM CHLORIDE [Concomitant]
     Active Substance: SODIUM CHLORIDE
     Route: 065
  202. SODIUM CHLORIDE [Concomitant]
     Active Substance: SODIUM CHLORIDE
     Dosage: 1 DOSAGE FORM, QD
     Route: 065
  203. SODIUM CHLORIDE [Concomitant]
     Active Substance: SODIUM CHLORIDE
     Route: 065
  204. SODIUM CHLORIDE [Concomitant]
     Active Substance: SODIUM CHLORIDE
     Route: 065
  205. SODIUM CHLORIDE [Concomitant]
     Active Substance: SODIUM CHLORIDE
     Route: 065
  206. SODIUM CHLORIDE [Concomitant]
     Active Substance: SODIUM CHLORIDE
     Route: 065
  207. SODIUM CHLORIDE [Concomitant]
     Active Substance: SODIUM CHLORIDE
     Route: 065
  208. SODIUM CHLORIDE [Concomitant]
     Active Substance: SODIUM CHLORIDE
  209. SODIUM CHLORIDE [Concomitant]
     Active Substance: SODIUM CHLORIDE
  210. SODIUM CHLORIDE [Concomitant]
     Active Substance: SODIUM CHLORIDE
     Route: 065
  211. SODIUM CHLORIDE [Concomitant]
     Active Substance: SODIUM CHLORIDE
     Route: 065
  212. SODIUM CHLORIDE [Concomitant]
     Active Substance: SODIUM CHLORIDE
     Route: 065
  213. SODIUM CHLORIDE [Concomitant]
     Active Substance: SODIUM CHLORIDE
     Route: 065
  214. SODIUM CHLORIDE [Concomitant]
     Active Substance: SODIUM CHLORIDE
     Route: 065
  215. SODIUM CHLORIDE [Concomitant]
     Active Substance: SODIUM CHLORIDE
     Route: 065
  216. SODIUM CHLORIDE [Concomitant]
     Active Substance: SODIUM CHLORIDE
     Route: 065
  217. SODIUM CHLORIDE [Concomitant]
     Active Substance: SODIUM CHLORIDE
     Route: 065
  218. SODIUM CHLORIDE [Concomitant]
     Active Substance: SODIUM CHLORIDE
     Route: 065
  219. SODIUM CHLORIDE [Concomitant]
     Active Substance: SODIUM CHLORIDE
     Route: 065
  220. SODIUM CHLORIDE [Concomitant]
     Active Substance: SODIUM CHLORIDE
     Route: 065
  221. SODIUM CHLORIDE [Concomitant]
     Active Substance: SODIUM CHLORIDE
     Route: 065
  222. SODIUM CHLORIDE [Concomitant]
     Active Substance: SODIUM CHLORIDE
     Route: 065
  223. SODIUM CHLORIDE [Concomitant]
     Active Substance: SODIUM CHLORIDE
     Route: 065
  224. SODIUM CHLORIDE [Concomitant]
     Active Substance: SODIUM CHLORIDE
     Route: 065
  225. SODIUM CHLORIDE [Concomitant]
     Active Substance: SODIUM CHLORIDE
     Route: 065
  226. SODIUM CHLORIDE [Concomitant]
     Active Substance: SODIUM CHLORIDE
     Route: 065
  227. SODIUM CHLORIDE [Concomitant]
     Active Substance: SODIUM CHLORIDE
     Route: 065
  228. SODIUM CHLORIDE [Concomitant]
     Active Substance: SODIUM CHLORIDE
     Route: 065
  229. SODIUM CHLORIDE [Concomitant]
     Active Substance: SODIUM CHLORIDE
     Route: 065
  230. SODIUM CHLORIDE [Concomitant]
     Active Substance: SODIUM CHLORIDE
     Route: 065
  231. SODIUM CHLORIDE [Concomitant]
     Active Substance: SODIUM CHLORIDE
     Route: 065
  232. SODIUM CHLORIDE [Concomitant]
     Active Substance: SODIUM CHLORIDE
     Route: 065
  233. SODIUM CHLORIDE [Concomitant]
     Active Substance: SODIUM CHLORIDE
     Route: 065
  234. SODIUM CHLORIDE [Concomitant]
     Active Substance: SODIUM CHLORIDE
     Route: 065
  235. SODIUM CHLORIDE [Concomitant]
     Active Substance: SODIUM CHLORIDE
     Route: 065
  236. SODIUM CHLORIDE [Concomitant]
     Active Substance: SODIUM CHLORIDE
     Route: 065
  237. SODIUM CHLORIDE [Concomitant]
     Active Substance: SODIUM CHLORIDE
     Route: 065
  238. SODIUM CHLORIDE [Concomitant]
     Active Substance: SODIUM CHLORIDE
     Route: 065
  239. SODIUM CHLORIDE [Concomitant]
     Active Substance: SODIUM CHLORIDE
     Route: 065
  240. SODIUM CHLORIDE [Concomitant]
     Active Substance: SODIUM CHLORIDE
     Route: 065
  241. SODIUM CHLORIDE [Concomitant]
     Active Substance: SODIUM CHLORIDE
     Route: 065
  242. SODIUM CHLORIDE [Concomitant]
     Active Substance: SODIUM CHLORIDE
     Route: 065
  243. SODIUM CHLORIDE [Concomitant]
     Active Substance: SODIUM CHLORIDE
     Route: 065
  244. SODIUM CHLORIDE [Concomitant]
     Active Substance: SODIUM CHLORIDE
     Route: 065
  245. SODIUM CHLORIDE [Concomitant]
     Active Substance: SODIUM CHLORIDE
     Route: 065
  246. SODIUM CHLORIDE [Concomitant]
     Active Substance: SODIUM CHLORIDE
     Route: 065
  247. SODIUM CHLORIDE [Concomitant]
     Active Substance: SODIUM CHLORIDE
     Route: 065
  248. SODIUM CHLORIDE [Concomitant]
     Active Substance: SODIUM CHLORIDE
     Route: 065
  249. SODIUM CHLORIDE [Concomitant]
     Active Substance: SODIUM CHLORIDE
     Route: 065
  250. SODIUM CHLORIDE [Concomitant]
     Active Substance: SODIUM CHLORIDE
     Route: 065
  251. SODIUM CHLORIDE [Concomitant]
     Active Substance: SODIUM CHLORIDE
     Route: 065
  252. SODIUM CHLORIDE [Concomitant]
     Active Substance: SODIUM CHLORIDE
     Route: 065
  253. SODIUM CHLORIDE [Concomitant]
     Active Substance: SODIUM CHLORIDE
     Route: 065
  254. SODIUM CHLORIDE [Concomitant]
     Active Substance: SODIUM CHLORIDE
     Route: 065
  255. SODIUM CHLORIDE [Concomitant]
     Active Substance: SODIUM CHLORIDE
     Route: 065
  256. SODIUM CHLORIDE [Concomitant]
     Active Substance: SODIUM CHLORIDE
     Route: 065
  257. SODIUM CHLORIDE [Concomitant]
     Active Substance: SODIUM CHLORIDE
     Route: 065
  258. SODIUM CHLORIDE [Concomitant]
     Active Substance: SODIUM CHLORIDE
     Route: 065
  259. SODIUM CHLORIDE [Concomitant]
     Active Substance: SODIUM CHLORIDE
     Route: 065
  260. SODIUM CHLORIDE [Concomitant]
     Active Substance: SODIUM CHLORIDE
     Route: 065
  261. SODIUM CHLORIDE [Concomitant]
     Active Substance: SODIUM CHLORIDE
     Route: 065
  262. SODIUM CHLORIDE [Concomitant]
     Active Substance: SODIUM CHLORIDE
     Route: 065
  263. SODIUM CHLORIDE [Concomitant]
     Active Substance: SODIUM CHLORIDE
     Route: 065
  264. SODIUM CHLORIDE [Concomitant]
     Active Substance: SODIUM CHLORIDE
     Route: 065
  265. SODIUM CHLORIDE [Concomitant]
     Active Substance: SODIUM CHLORIDE
     Dosage: 3 DOSAGE FORM, QD
     Route: 065
  266. SODIUM CHLORIDE [Concomitant]
     Active Substance: SODIUM CHLORIDE
     Route: 065
  267. SODIUM CHLORIDE [Concomitant]
     Active Substance: SODIUM CHLORIDE
     Route: 065
  268. SODIUM CHLORIDE [Concomitant]
     Active Substance: SODIUM CHLORIDE
     Route: 065
  269. SODIUM CHLORIDE [Concomitant]
     Active Substance: SODIUM CHLORIDE
     Route: 065
  270. SODIUM CHLORIDE [Concomitant]
     Active Substance: SODIUM CHLORIDE
     Route: 065
  271. SODIUM CHLORIDE [Concomitant]
     Active Substance: SODIUM CHLORIDE
     Route: 065
  272. SODIUM CHLORIDE [Concomitant]
     Active Substance: SODIUM CHLORIDE
     Route: 065
  273. SODIUM CHLORIDE [Concomitant]
     Active Substance: SODIUM CHLORIDE
     Route: 065
  274. SODIUM CHLORIDE [Concomitant]
     Active Substance: SODIUM CHLORIDE
     Route: 065
  275. SODIUM CHLORIDE [Concomitant]
     Active Substance: SODIUM CHLORIDE
     Route: 065
  276. SODIUM CHLORIDE [Concomitant]
     Active Substance: SODIUM CHLORIDE
     Route: 065
  277. SODIUM CHLORIDE [Concomitant]
     Active Substance: SODIUM CHLORIDE
     Route: 065
  278. SODIUM CHLORIDE [Concomitant]
     Active Substance: SODIUM CHLORIDE
     Route: 065
  279. SODIUM CHLORIDE [Concomitant]
     Active Substance: SODIUM CHLORIDE
     Route: 065
  280. SODIUM CHLORIDE [Concomitant]
     Active Substance: SODIUM CHLORIDE
     Route: 065
  281. SODIUM CHLORIDE [Concomitant]
     Active Substance: SODIUM CHLORIDE
     Route: 065
  282. SODIUM CHLORIDE [Concomitant]
     Active Substance: SODIUM CHLORIDE
     Route: 065
  283. SODIUM CHLORIDE [Concomitant]
     Active Substance: SODIUM CHLORIDE
     Route: 065
  284. SODIUM CHLORIDE [Concomitant]
     Active Substance: SODIUM CHLORIDE
     Route: 065
  285. SODIUM CHLORIDE [Concomitant]
     Active Substance: SODIUM CHLORIDE
     Route: 065
  286. SODIUM CHLORIDE [Concomitant]
     Active Substance: SODIUM CHLORIDE
     Route: 065
  287. SODIUM CHLORIDE [Concomitant]
     Active Substance: SODIUM CHLORIDE
     Route: 065
  288. SODIUM CHLORIDE [Concomitant]
     Active Substance: SODIUM CHLORIDE
     Route: 065
  289. SODIUM CHLORIDE [Concomitant]
     Active Substance: SODIUM CHLORIDE
     Route: 065
  290. SODIUM CHLORIDE [Concomitant]
     Active Substance: SODIUM CHLORIDE
     Route: 065
  291. SODIUM CHLORIDE [Concomitant]
     Active Substance: SODIUM CHLORIDE
     Route: 065
  292. SODIUM CHLORIDE [Concomitant]
     Active Substance: SODIUM CHLORIDE
     Route: 065
  293. SODIUM CHLORIDE [Concomitant]
     Active Substance: SODIUM CHLORIDE
     Route: 065
  294. SODIUM CHLORIDE [Concomitant]
     Active Substance: SODIUM CHLORIDE
     Route: 065
  295. SODIUM CHLORIDE [Concomitant]
     Active Substance: SODIUM CHLORIDE
     Route: 065
  296. SODIUM CHLORIDE [Concomitant]
     Active Substance: SODIUM CHLORIDE
     Route: 065
  297. SODIUM CHLORIDE [Concomitant]
     Active Substance: SODIUM CHLORIDE
     Route: 065
  298. SODIUM CHLORIDE [Concomitant]
     Active Substance: SODIUM CHLORIDE
     Route: 065
  299. SODIUM CHLORIDE [Concomitant]
     Active Substance: SODIUM CHLORIDE
     Route: 065
  300. CORDAREX [Concomitant]
     Active Substance: AMIODARONE
     Indication: Product used for unknown indication
     Dosage: 200 MG, QD
     Route: 065
  301. CORDAREX [Concomitant]
     Active Substance: AMIODARONE
     Dosage: 200 MG, QD
     Route: 065
  302. CORDAREX [Concomitant]
     Active Substance: AMIODARONE
     Dosage: 200 MG, QD
     Route: 065
  303. CORDAREX [Concomitant]
     Active Substance: AMIODARONE
     Dosage: 200 MG, QD
     Route: 065
  304. CORDAREX [Concomitant]
     Active Substance: AMIODARONE
     Dosage: 200 MG, QD
     Route: 065
  305. CORDAREX [Concomitant]
     Active Substance: AMIODARONE
     Dosage: UNK, QD
     Route: 065
  306. CORDAREX [Concomitant]
     Active Substance: AMIODARONE
     Dosage: UNK, QD
     Route: 065
  307. CORDAREX [Concomitant]
     Active Substance: AMIODARONE
     Dosage: UNK, QD
     Route: 065
  308. CORDAREX [Concomitant]
     Active Substance: AMIODARONE
     Dosage: UNK, QD
     Route: 065
  309. CORDAREX [Concomitant]
     Active Substance: AMIODARONE
     Dosage: UNK, QD
     Route: 065
  310. CORDAREX [Concomitant]
     Active Substance: AMIODARONE
     Dosage: UNK, QD
     Route: 065
  311. CORDAREX [Concomitant]
     Active Substance: AMIODARONE
     Dosage: UNK, QD
     Route: 065
  312. CORDAREX [Concomitant]
     Active Substance: AMIODARONE
     Dosage: UNK, QD
     Route: 065
  313. LEVOSIMENDAN [Concomitant]
     Active Substance: LEVOSIMENDAN
     Indication: Product used for unknown indication
     Route: 065
     Dates: start: 201611, end: 201611
  314. LEVOSIMENDAN [Concomitant]
     Active Substance: LEVOSIMENDAN
     Indication: Product used for unknown indication
     Route: 065
     Dates: start: 201611, end: 201611
  315. LEVOSIMENDAN [Concomitant]
     Active Substance: LEVOSIMENDAN
     Route: 065
     Dates: start: 201611, end: 201611
  316. LEVOSIMENDAN [Concomitant]
     Active Substance: LEVOSIMENDAN
     Route: 065
     Dates: start: 201611, end: 201611
  317. LEVOSIMENDAN [Concomitant]
     Active Substance: LEVOSIMENDAN
     Route: 065
     Dates: start: 201611, end: 201611
  318. LEVOSIMENDAN [Concomitant]
     Active Substance: LEVOSIMENDAN
     Route: 065
     Dates: start: 201611, end: 201611
  319. LEVOSIMENDAN [Concomitant]
     Active Substance: LEVOSIMENDAN
     Route: 065
     Dates: start: 201611, end: 201611
  320. LEVOSIMENDAN [Concomitant]
     Active Substance: LEVOSIMENDAN
     Route: 065
     Dates: start: 201611, end: 201611
  321. LEVOSIMENDAN [Concomitant]
     Active Substance: LEVOSIMENDAN
     Route: 065
     Dates: start: 201611, end: 201611
  322. LEVOSIMENDAN [Concomitant]
     Active Substance: LEVOSIMENDAN
     Route: 065
  323. LEVOSIMENDAN [Concomitant]
     Active Substance: LEVOSIMENDAN
     Route: 065
  324. LEVOSIMENDAN [Concomitant]
     Active Substance: LEVOSIMENDAN
     Route: 065
  325. LEVOSIMENDAN [Concomitant]
     Active Substance: LEVOSIMENDAN
     Route: 065
  326. LEVOSIMENDAN [Concomitant]
     Active Substance: LEVOSIMENDAN
     Route: 065
  327. LEVOSIMENDAN [Concomitant]
     Active Substance: LEVOSIMENDAN
     Route: 065
  328. LEVOSIMENDAN [Concomitant]
     Active Substance: LEVOSIMENDAN
     Route: 065
  329. LEVOSIMENDAN [Concomitant]
     Active Substance: LEVOSIMENDAN
     Route: 065
  330. LEVOSIMENDAN [Concomitant]
     Active Substance: LEVOSIMENDAN
     Route: 065
  331. LEVOSIMENDAN [Concomitant]
     Active Substance: LEVOSIMENDAN
     Route: 065
  332. LEVOSIMENDAN [Concomitant]
     Active Substance: LEVOSIMENDAN
     Route: 065
  333. LEVOSIMENDAN [Concomitant]
     Active Substance: LEVOSIMENDAN
     Route: 065
  334. LEVOSIMENDAN [Concomitant]
     Active Substance: LEVOSIMENDAN
     Route: 065
  335. LEVOSIMENDAN [Concomitant]
     Active Substance: LEVOSIMENDAN
     Route: 065
  336. LEVOSIMENDAN [Concomitant]
     Active Substance: LEVOSIMENDAN
     Route: 065
  337. LEVOSIMENDAN [Concomitant]
     Active Substance: LEVOSIMENDAN
     Route: 065
  338. LEVOSIMENDAN [Concomitant]
     Active Substance: LEVOSIMENDAN
     Route: 065
  339. LEVOSIMENDAN [Concomitant]
     Active Substance: LEVOSIMENDAN
     Route: 065
  340. LEVOSIMENDAN [Concomitant]
     Active Substance: LEVOSIMENDAN
     Route: 065
  341. LEVOSIMENDAN [Concomitant]
     Active Substance: LEVOSIMENDAN
     Route: 065
  342. LEVOSIMENDAN [Concomitant]
     Active Substance: LEVOSIMENDAN
     Route: 065
  343. LEVOSIMENDAN [Concomitant]
     Active Substance: LEVOSIMENDAN
     Route: 065
  344. LEVOSIMENDAN [Concomitant]
     Active Substance: LEVOSIMENDAN
     Route: 065
  345. LEVOSIMENDAN [Concomitant]
     Active Substance: LEVOSIMENDAN
     Route: 065
  346. LEVOSIMENDAN [Concomitant]
     Active Substance: LEVOSIMENDAN
     Route: 065
  347. LEVOSIMENDAN [Concomitant]
     Active Substance: LEVOSIMENDAN
     Route: 065
  348. LEVOSIMENDAN [Concomitant]
     Active Substance: LEVOSIMENDAN
     Route: 065
  349. LEVOSIMENDAN [Concomitant]
     Active Substance: LEVOSIMENDAN
     Route: 065
  350. LEVOSIMENDAN [Concomitant]
     Active Substance: LEVOSIMENDAN
     Route: 065
  351. LEVOSIMENDAN [Concomitant]
     Active Substance: LEVOSIMENDAN
     Route: 065
  352. LEVOSIMENDAN [Concomitant]
     Active Substance: LEVOSIMENDAN
     Route: 065
  353. LEVOSIMENDAN [Concomitant]
     Active Substance: LEVOSIMENDAN
     Route: 065
  354. LEVOSIMENDAN [Concomitant]
     Active Substance: LEVOSIMENDAN
     Route: 065
  355. LEVOSIMENDAN [Concomitant]
     Active Substance: LEVOSIMENDAN
     Route: 065
  356. LEVOSIMENDAN [Concomitant]
     Active Substance: LEVOSIMENDAN
     Route: 065
  357. LEVOSIMENDAN [Concomitant]
     Active Substance: LEVOSIMENDAN
     Route: 065
  358. LEVOSIMENDAN [Concomitant]
     Active Substance: LEVOSIMENDAN
     Route: 065
  359. LEVOSIMENDAN [Concomitant]
     Active Substance: LEVOSIMENDAN
     Route: 065
  360. LEVOSIMENDAN [Concomitant]
     Active Substance: LEVOSIMENDAN
     Route: 065
  361. LEVOSIMENDAN [Concomitant]
     Active Substance: LEVOSIMENDAN
     Route: 065
  362. ENOXAPARIN SODIUM [Concomitant]
     Active Substance: ENOXAPARIN SODIUM
     Indication: Product used for unknown indication
     Route: 065
     Dates: start: 2016
  363. ENOXAPARIN SODIUM [Concomitant]
     Active Substance: ENOXAPARIN SODIUM
     Route: 065
  364. ENOXAPARIN SODIUM [Concomitant]
     Active Substance: ENOXAPARIN SODIUM
     Dosage: 0.5 MG, QD
     Route: 065
  365. ENOXAPARIN SODIUM [Concomitant]
     Active Substance: ENOXAPARIN SODIUM
     Route: 065
  366. ENOXAPARIN SODIUM [Concomitant]
     Active Substance: ENOXAPARIN SODIUM
     Route: 065
  367. ENOXAPARIN SODIUM [Concomitant]
     Active Substance: ENOXAPARIN SODIUM
     Route: 065
  368. ENOXAPARIN SODIUM [Concomitant]
     Active Substance: ENOXAPARIN SODIUM
     Dosage: 0.6 MG, QD
     Route: 065
  369. ENOXAPARIN SODIUM [Concomitant]
     Active Substance: ENOXAPARIN SODIUM
     Dosage: 5 MG, QD
     Route: 065
  370. ENOXAPARIN SODIUM [Concomitant]
     Active Substance: ENOXAPARIN SODIUM
     Dosage: 0.6 MG, QD
     Route: 065
  371. ENOXAPARIN SODIUM [Concomitant]
     Active Substance: ENOXAPARIN SODIUM
     Dosage: 5 MG, QD
     Route: 065
  372. ENOXAPARIN SODIUM [Concomitant]
     Active Substance: ENOXAPARIN SODIUM
     Dosage: 0.6 MG, QD
     Route: 065
  373. ENOXAPARIN SODIUM [Concomitant]
     Active Substance: ENOXAPARIN SODIUM
     Dosage: 5 MG, QD
     Route: 065
  374. ENOXAPARIN SODIUM [Concomitant]
     Active Substance: ENOXAPARIN SODIUM
     Dosage: 0.6 MG, QD
     Route: 065
  375. ENOXAPARIN SODIUM [Concomitant]
     Active Substance: ENOXAPARIN SODIUM
     Route: 065
  376. ENOXAPARIN SODIUM [Concomitant]
     Active Substance: ENOXAPARIN SODIUM
     Dosage: 0.6 MG, QD
     Route: 065
  377. ENOXAPARIN SODIUM [Concomitant]
     Active Substance: ENOXAPARIN SODIUM
     Dosage: 0.6 MG, QD
     Route: 065
  378. ENOXAPARIN SODIUM [Concomitant]
     Active Substance: ENOXAPARIN SODIUM
     Dosage: 0.6 MG, QD
     Route: 065
  379. ENOXAPARIN SODIUM [Concomitant]
     Active Substance: ENOXAPARIN SODIUM
     Route: 065
  380. ENOXAPARIN SODIUM [Concomitant]
     Active Substance: ENOXAPARIN SODIUM
     Route: 065
  381. ENOXAPARIN SODIUM [Concomitant]
     Active Substance: ENOXAPARIN SODIUM
     Dosage: 0.6 MG, QD
     Route: 065
  382. ENOXAPARIN SODIUM [Concomitant]
     Active Substance: ENOXAPARIN SODIUM
     Route: 065
  383. ENOXAPARIN SODIUM [Concomitant]
     Active Substance: ENOXAPARIN SODIUM
     Dosage: 5 MG, QD
     Route: 065
  384. ENOXAPARIN SODIUM [Concomitant]
     Active Substance: ENOXAPARIN SODIUM
     Dosage: 5 MG, QD
     Route: 065
  385. ENOXAPARIN SODIUM [Concomitant]
     Active Substance: ENOXAPARIN SODIUM
     Route: 065
  386. ENOXAPARIN SODIUM [Concomitant]
     Active Substance: ENOXAPARIN SODIUM
     Route: 065
  387. MAGALDRATE [Concomitant]
     Active Substance: MAGALDRATE
     Indication: Product used for unknown indication
     Route: 065
  388. MAGALDRATE [Concomitant]
     Active Substance: MAGALDRATE
     Dosage: 1600 MG, QD
     Route: 065
  389. MAGALDRATE [Concomitant]
     Active Substance: MAGALDRATE
     Dosage: 4800 MG, QD
     Route: 065
  390. MAGALDRATE [Concomitant]
     Active Substance: MAGALDRATE
     Dosage: 1600 MG, QD
     Route: 065
  391. MAGALDRATE [Concomitant]
     Active Substance: MAGALDRATE
     Route: 065
  392. MAGALDRATE [Concomitant]
     Active Substance: MAGALDRATE
     Route: 065
  393. MAGALDRATE [Concomitant]
     Active Substance: MAGALDRATE
     Route: 065
  394. MAGALDRATE [Concomitant]
     Active Substance: MAGALDRATE
     Route: 065
  395. MAGALDRATE [Concomitant]
     Active Substance: MAGALDRATE
     Route: 065
  396. PREDNISOLONE [Concomitant]
     Active Substance: PREDNISOLONE
     Indication: Product used for unknown indication
     Route: 065
  397. TORSEMIDE [Concomitant]
     Active Substance: TORSEMIDE
     Indication: Product used for unknown indication
     Dosage: 1 DOSAGE FORM, QD
     Route: 048
  398. TORSEMIDE [Concomitant]
     Active Substance: TORSEMIDE
     Dosage: 5 UNK, QD
     Route: 048
  399. TORSEMIDE [Concomitant]
     Active Substance: TORSEMIDE
     Route: 048

REACTIONS (22)
  - Wound infection pseudomonas [Recovering/Resolving]
  - Gastrointestinal haemorrhage [Recovered/Resolved]
  - Femoral hernia incarcerated [Recovered/Resolved]
  - Anaemia [Recovered/Resolved]
  - Lymphatic fistula [Recovered/Resolved]
  - Eructation [Unknown]
  - Faecaloma [Unknown]
  - Abdominal discomfort [Unknown]
  - Hepatic cyst [Unknown]
  - Mitral valve incompetence [Unknown]
  - Dyspepsia [Unknown]
  - Gait disturbance [Recovering/Resolving]
  - Coronary artery disease [Unknown]
  - Decreased appetite [Unknown]
  - Cardiovascular disorder [Unknown]
  - Acute kidney injury [Unknown]
  - Postoperative wound infection [Recovered/Resolved]
  - Haematuria [Recovering/Resolving]
  - Groin pain [Unknown]
  - Dyspnoea [Unknown]
  - Arterial haemorrhage [Recovered/Resolved]
  - General physical health deterioration [Unknown]

NARRATIVE: CASE EVENT DATE: 20160928
